FAERS Safety Report 24187489 (Version 1)
Quarter: 2024Q3

REPORT INFORMATION
  Report Type: Spontaneous
  Country: GB (occurrence: GB)
  Receive Date: 20240808
  Receipt Date: 20240808
  Transmission Date: 20241016
  Serious: Yes (Other)
  Sender: RANBAXY
  Company Number: GB-MHRA-MED-202407231444054760-DFKPZ

PATIENT
  Age: 81 Year
  Sex: Female

DRUGS (1)
  1. CODEINE [Suspect]
     Active Substance: CODEINE
     Indication: Pain
     Dosage: 15MG QDS PRN
     Route: 065
     Dates: start: 20240716

REACTIONS (1)
  - Hallucination [Recovered/Resolved]
